FAERS Safety Report 13292565 (Version 2)
Quarter: 2017Q1

REPORT INFORMATION
  Report Type: Spontaneous
  Country: TW (occurrence: TW)
  Receive Date: 20170303
  Receipt Date: 20170313
  Transmission Date: 20170428
  Serious: Yes (Other)
  Sender: FDA-Public Use
  Company Number: TW-BAYER-2017-036360

PATIENT
  Age: 57 Year
  Sex: Male

DRUGS (1)
  1. NEXAVAR [Suspect]
     Active Substance: SORAFENIB
     Indication: THYROID CANCER
     Dosage: UNK
     Dates: start: 20160720

REACTIONS (8)
  - Haemoglobin decreased [None]
  - Lymphadenopathy mediastinal [None]
  - Metastases to lung [None]
  - Metastases to spine [None]
  - Metastases to pleura [None]
  - Malignant pleural effusion [None]
  - Lymphadenopathy [None]
  - Hilar lymphadenopathy [None]

NARRATIVE: CASE EVENT DATE: 20160803
